FAERS Safety Report 16703125 (Version 2)
Quarter: 2019Q3

REPORT INFORMATION
  Report Type: Report from Study
  Country: CA (occurrence: CA)
  Receive Date: 20190814
  Receipt Date: 20190917
  Transmission Date: 20191004
  Serious: Yes (Hospitalization, Other)
  Sender: FDA-Public Use
  Company Number: CA-JNJFOC-20180719112

PATIENT
  Age: 34 Year
  Sex: Female
  Weight: 52.4 kg

DRUGS (15)
  1. VENLAFAXINE [Concomitant]
     Active Substance: VENLAFAXINE HYDROCHLORIDE
     Route: 048
  2. OXYNEO [Concomitant]
     Active Substance: OXYCODONE
     Route: 048
  3. SUPEUDOL [Concomitant]
     Active Substance: OXYCODONE HYDROCHLORIDE
     Route: 048
  4. CHAMPIX [Concomitant]
     Active Substance: VARENICLINE TARTRATE
     Route: 048
  5. OXYNEO [Concomitant]
     Active Substance: OXYCODONE
     Route: 048
  6. OXYNEO [Concomitant]
     Active Substance: OXYCODONE
  7. REMICADE [Suspect]
     Active Substance: INFLIXIMAB
     Indication: CROHN^S DISEASE
     Route: 042
     Dates: start: 20141024
  8. OXYNEO [Concomitant]
     Active Substance: OXYCODONE
     Route: 048
  9. LORAZEPAM. [Concomitant]
     Active Substance: LORAZEPAM
     Route: 065
  10. PREGABALIN. [Concomitant]
     Active Substance: PREGABALIN
     Route: 048
  11. SUPEUDOL [Concomitant]
     Active Substance: OXYCODONE HYDROCHLORIDE
     Route: 048
  12. OXYNEO [Concomitant]
     Active Substance: OXYCODONE
     Indication: PAIN
     Route: 048
  13. OXYNEO [Concomitant]
     Active Substance: OXYCODONE
     Route: 048
  14. OXYNEO [Concomitant]
     Active Substance: OXYCODONE
     Route: 048
  15. AMITRIPTYLINE [Concomitant]
     Active Substance: AMITRIPTYLINE
     Route: 048

REACTIONS (9)
  - Therapeutic product effect decreased [Unknown]
  - Ovarian cyst [Not Recovered/Not Resolved]
  - Fatigue [Recovered/Resolved]
  - Intra-uterine contraceptive device removal [Unknown]
  - Nausea [Not Recovered/Not Resolved]
  - General physical health deterioration [Unknown]
  - Breast enlargement [Recovering/Resolving]
  - Crohn^s disease [Not Recovered/Not Resolved]
  - Migraine [Not Recovered/Not Resolved]

NARRATIVE: CASE EVENT DATE: 20180906
